FAERS Safety Report 19426637 (Version 1)
Quarter: 2021Q2

REPORT INFORMATION
  Report Type: Spontaneous
  Country: CH (occurrence: CH)
  Receive Date: 20210616
  Receipt Date: 20210616
  Transmission Date: 20210717
  Serious: Yes (Death, Other)
  Sender: FDA-Public Use
  Company Number: CH-PFIZER INC-2021667780

PATIENT
  Age: 60 Year
  Sex: Female

DRUGS (8)
  1. VALACICLOVIR HCL [Concomitant]
     Active Substance: VALACYCLOVIR HYDROCHLORIDE
     Dosage: UNK
  2. MEROPENEM LABATEC [Suspect]
     Active Substance: MEROPENEM
     Indication: INFECTION
     Dosage: 2 G, 3X/DAY
     Route: 042
     Dates: start: 20210413, end: 20210420
  3. VORICONAZOLE. [Suspect]
     Active Substance: VORICONAZOLE
     Indication: STEM CELL TRANSPLANT
     Dosage: 200 MG, 2X/DAY
     Route: 042
     Dates: start: 20210418, end: 20210420
  4. CICLOSPORINUM [Concomitant]
     Active Substance: CYCLOSPORINE
     Dosage: UNK
  5. PREVYMIS [Concomitant]
     Active Substance: LETERMOVIR
     Dosage: UNK
  6. VORICONAZOLE. [Suspect]
     Active Substance: VORICONAZOLE
     Indication: INFECTION
     Dosage: 250 MG, 2X/DAY
     Route: 042
     Dates: start: 20210405, end: 20210417
  7. MEROPENEM LABATEC [Suspect]
     Active Substance: MEROPENEM
     Indication: STEM CELL TRANSPLANT
  8. MYCOPHENOLATE MOFETIL. [Concomitant]
     Active Substance: MYCOPHENOLATE MOFETIL
     Dosage: UNK

REACTIONS (4)
  - Acute hepatic failure [Unknown]
  - Respiratory failure [Unknown]
  - Drug level increased [Unknown]
  - Acute pulmonary oedema [Unknown]

NARRATIVE: CASE EVENT DATE: 20210416
